FAERS Safety Report 8069592-8 (Version None)
Quarter: 2012Q1

REPORT INFORMATION
  Report Type: 
  Country: None (occurrence: None)
  Receive Date: 20120125
  Receipt Date: 20120123
  Transmission Date: 20120608
  Serious: Yes (Life-Threatening)
  Sender: FDA-Public Use
  Company Number: FR-JNJFOC-20120107095

PATIENT
  Age: 75 Year
  Sex: Female

DRUGS (8)
  1. NIMBEX [Suspect]
     Indication: ANAESTHESIA
     Dosage: 1 PER 1 DAY
     Route: 042
     Dates: start: 20110913, end: 20110913
  2. CEFAMANDOLE SODIUM [Suspect]
     Indication: PROPHYLAXIS
     Dosage: 1 PER 1 DAY
     Route: 042
     Dates: start: 20110913, end: 20110913
  3. SUFENTA PRESERVATIVE FREE [Suspect]
     Indication: ANAESTHESIA
     Dosage: 1 PER 1 DAY
     Route: 042
     Dates: start: 20110913, end: 20110913
  4. SEVOFLURANE [Suspect]
     Indication: ANAESTHESIA
     Dosage: 1 PER 1 DAY
     Route: 055
     Dates: start: 20110913, end: 20110913
  5. TRAMADOL HCL [Suspect]
     Indication: PRODUCT USED FOR UNKNOWN INDICATION
     Dosage: ONCE A DAY
     Route: 065
     Dates: start: 20110913, end: 20110913
  6. NEOSTIGMINE [Suspect]
     Indication: PRODUCT USED FOR UNKNOWN INDICATION
     Dosage: 1 PER 1 DAY
     Route: 042
     Dates: start: 20110913, end: 20110913
  7. DIPRIVAN [Suspect]
     Indication: PRODUCT USED FOR UNKNOWN INDICATION
     Dosage: 1 PER 1 DAY
     Route: 042
     Dates: start: 20110913, end: 20110913
  8. ATROPINE [Suspect]
     Indication: PRODUCT USED FOR UNKNOWN INDICATION
     Dosage: 1 PER 1 DAY
     Route: 042
     Dates: start: 20110913, end: 20110913

REACTIONS (4)
  - ERYTHEMA [None]
  - DYSARTHRIA [None]
  - SINUS TACHYCARDIA [None]
  - BLOOD PRESSURE DECREASED [None]
